FAERS Safety Report 4456869-8 (Version None)
Quarter: 2004Q3

REPORT INFORMATION
  Report Type: 
  Country: None (occurrence: None)
  Receive Date: 20040921
  Receipt Date: 20040914
  Transmission Date: 20050211
  Serious: Yes (Hospitalization)
  Sender: FDA-Public Use
  Company Number: FR-2004-025706

PATIENT
  Age: 84 Year
  Sex: Male

DRUGS (10)
  1. SOTALOL HCL [Suspect]
     Dosage: 80 MG, 1X/DAY
  2. ATHYMIL           (MIANSERIN  HYDROCHLORIDE) [Suspect]
     Indication: DEPRESSION
     Dosage: 30 MG, 1X/DAY
     Dates: start: 20040101
  3. DOLIPRANE            (PARACETAMOL)     EFFERVESCENT TABLET [Suspect]
     Dosage: 500 MG, 2X/DAY
     Route: 048
  4. LASIX [Suspect]
     Dosage: 40 MG, 1X/DAY
  5. RAMIPRIL [Suspect]
     Dosage: 1.25MG   1 X/ DAY
  6. DECAPEPTYL - SLOW RELEASE [Suspect]
  7. ASASANTIN  (ACETYLSALICYLIC ACID, DIPYRIDAMOL) [Concomitant]
  8. VASTAREL  (TRIMETAZONE HYDROCHLORIDE) [Concomitant]
  9. TRINIPATCH [Concomitant]
  10. SERETIDE  DISKUS  (SALMETEROL XINA FOATE PROPIONATE) [Concomitant]

REACTIONS (8)
  - BLOOD FOLATE INCREASED [None]
  - BLOOD IRON DECREASED [None]
  - BLOOD LACTATE DEHYDROGENASE INCREASED [None]
  - GASTRIC POLYPS [None]
  - HAEMOLYTIC ANAEMIA [None]
  - LABORATORY TEST ABNORMAL [None]
  - MEAN CELL VOLUME ABNORMAL [None]
  - VITAMIN B12 DECREASED [None]
